FAERS Safety Report 7363419-5 (Version None)
Quarter: 2011Q1

REPORT INFORMATION
  Report Type: 
  Country: None (occurrence: None)
  Receive Date: 20110321
  Receipt Date: 20110310
  Transmission Date: 20110831
  Serious: Yes (Other)
  Sender: FDA-Public Use
  Company Number: PHHY2010BR54052

PATIENT
  Age: 77 Year
  Sex: Female

DRUGS (1)
  1. HYDERGINE [Suspect]

REACTIONS (3)
  - BLOOD PRESSURE INCREASED [None]
  - MYOCARDIAL INFARCTION [None]
  - FEELING ABNORMAL [None]
